FAERS Safety Report 4494389-5 (Version None)
Quarter: 2004Q4

REPORT INFORMATION
  Report Type: 
  Country: None (occurrence: None)
  Receive Date: 20041104
  Receipt Date: 20041104
  Transmission Date: 20050328
  Serious: Yes (Life-Threatening)
  Sender: FDA-Public Use
  Company Number: None

PATIENT
  Age: 62 Year
  Sex: Female
  Weight: 63.5036 kg

DRUGS (2)
  1. CELEBREX [Suspect]
     Indication: ARTHRITIS
     Dosage: ORAL -TWICE A DAY-250 MG?
     Route: 048
  2. CELEBREX [Suspect]
     Indication: MYOSITIS
     Dosage: ORAL -TWICE A DAY-250 MG?
     Route: 048

REACTIONS (2)
  - LIVER DISORDER [None]
  - RENAL IMPAIRMENT [None]
